FAERS Safety Report 8891011 (Version 2)
Quarter: 2012Q4

REPORT INFORMATION
  Report Type: 
  Country: US (occurrence: US)
  Receive Date: 20121107
  Receipt Date: 20121120
  Transmission Date: 20130627
  Serious: Yes (Hospitalization, Other)
  Sender: FDA-Public Use
  Company Number: US-PURDUE-USA-2012-0095355

PATIENT
  Age: 57 Year
  Sex: Female

DRUGS (6)
  1. DILAUDID INJECTION [Suspect]
     Indication: PAIN
     Dosage: 1 mg, see text
     Route: 042
     Dates: start: 201203, end: 201203
  2. DILAUDID INJECTION [Suspect]
     Indication: ANXIETY
  3. PROZAC [Concomitant]
     Indication: DEPRESSION
     Dosage: 20 mg, tid
     Route: 048
  4. KLONOPIN [Concomitant]
     Indication: ANXIETY
     Dosage: 1 mg, see text
     Route: 048
  5. SEROQUEL [Concomitant]
     Indication: DEPRESSION
     Dosage: 300 mg, hs
     Route: 048
  6. TRAZODONE [Concomitant]
     Indication: ANXIETY
     Dosage: 100 mg, hs
     Route: 048

REACTIONS (5)
  - Heart rate decreased [Recovered/Resolved]
  - Gastrointestinal pain [Unknown]
  - Chest pain [Recovered/Resolved]
  - Dizziness [Recovered/Resolved]
  - Vomiting [Recovered/Resolved]
